FAERS Safety Report 16623287 (Version 1)
Quarter: 2019Q3

REPORT INFORMATION
  Report Type: Spontaneous
  Country: IT (occurrence: IT)
  Receive Date: 20190724
  Receipt Date: 20190724
  Transmission Date: 20191004
  Serious: Yes (Other)
  Sender: FDA-Public Use
  Company Number: IT-TAKEDA-2019TUS044575

PATIENT
  Age: 43 Year
  Sex: Female

DRUGS (1)
  1. ENTYVIO [Suspect]
     Active Substance: VEDOLIZUMAB
     Indication: CROHN^S DISEASE
     Dosage: 300 MILLIGRAM
     Route: 042
     Dates: start: 20180122, end: 20180829

REACTIONS (3)
  - Condition aggravated [Recovering/Resolving]
  - Therapy non-responder [Recovering/Resolving]
  - Diarrhoea haemorrhagic [Recovering/Resolving]

NARRATIVE: CASE EVENT DATE: 20180829
